FAERS Safety Report 8598334-2 (Version None)
Quarter: 2012Q3

REPORT INFORMATION
  Report Type: 
  Country: None (occurrence: None)
  Receive Date: 20120816
  Receipt Date: 20120808
  Transmission Date: 20120928
  Serious: Yes (Hospitalization, Disabling)
  Sender: FDA-Public Use
  Company Number: DE-JNJFOC-20120802556

PATIENT
  Sex: Male
  Weight: 67 kg

DRUGS (5)
  1. VERAPAMIL [Concomitant]
  2. PANTOPRAZOLE [Concomitant]
  3. XARELTO [Suspect]
     Indication: CEREBROVASCULAR ACCIDENT PROPHYLAXIS
     Route: 048
     Dates: start: 20120201
  4. VOCADO [Concomitant]
  5. XARELTO [Suspect]
     Indication: ATRIAL FIBRILLATION
     Route: 048
     Dates: start: 20120201

REACTIONS (1)
  - ISCHAEMIC STROKE [None]
